FAERS Safety Report 8020825-3 (Version None)
Quarter: 2012Q1

REPORT INFORMATION
  Report Type: 
  Country: None (occurrence: None)
  Receive Date: 20120104
  Receipt Date: 20090520
  Transmission Date: 20120608
  Serious: No
  Sender: FDA-Public Use
  Company Number: 2009BI015534

PATIENT
  Age: 39 Year
  Sex: Female

DRUGS (5)
  1. TYSABRI [Suspect]
     Indication: MULTIPLE SCLEROSIS
     Route: 042
     Dates: start: 20071130, end: 20080407
  2. STEROIDS (NOS) [Concomitant]
     Indication: PRODUCT USED FOR UNKNOWN INDICATION
     Dates: start: 20090101, end: 20090101
  3. PREDNISONE TAB [Concomitant]
     Indication: PREMEDICATION
     Route: 048
  4. TYSABRI [Suspect]
     Route: 042
     Dates: start: 20080917, end: 20081022
  5. TYSABRI [Suspect]
     Route: 042
     Dates: start: 20090102

REACTIONS (2)
  - NASOPHARYNGITIS [None]
  - HYPERSENSITIVITY [None]
